FAERS Safety Report 24173052 (Version 1)
Quarter: 2024Q3

REPORT INFORMATION
  Report Type: Other
  Country: US (occurrence: JP)
  Receive Date: 20240805
  Receipt Date: 20240805
  Transmission Date: 20241016
  Serious: Yes (unspecified)
  Sender: SAPTALIS PHARMACEUTICALS
  Company Number: JP-Saptalis Pharmaceuticals LLC-2160016

PATIENT
  Age: 45 Year
  Sex: Female

DRUGS (1)
  1. METFORMIN HYDROCHLORIDE [Suspect]
     Active Substance: METFORMIN HYDROCHLORIDE

REACTIONS (2)
  - Distributive shock [Recovered/Resolved]
  - Lactic acidosis [Recovered/Resolved]
